FAERS Safety Report 6749932-X (Version None)
Quarter: 2010Q2

REPORT INFORMATION
  Report Type: 
  Country: None (occurrence: None)
  Receive Date: 20100601
  Receipt Date: 20100525
  Transmission Date: 20101027
  Serious: Yes (Life-Threatening)
  Sender: FDA-Public Use
  Company Number: HU-ASTRAZENECA-2010SE23891

PATIENT
  Age: 26 Year
  Sex: Male

DRUGS (2)
  1. BUPIVACAINE HCL [Suspect]
     Indication: ANAESTHESIA
     Route: 013
  2. LIDOCAINE [Suspect]
     Indication: LOCAL ANAESTHESIA
     Route: 013

REACTIONS (3)
  - ANAESTHETIC COMPLICATION NEUROLOGICAL [None]
  - COMA [None]
  - TACHYPNOEA [None]
